FAERS Safety Report 8032847-7 (Version None)
Quarter: 2011Q4

REPORT INFORMATION
  Report Type: 
  Country: None (occurrence: None)
  Receive Date: 20111229
  Receipt Date: 20111221
  Transmission Date: 20120403
  Serious: Yes (Disabling, Other)
  Sender: FDA-Public Use
  Company Number: DSA_48599_2011

PATIENT
  Age: 40 Year
  Sex: Female

DRUGS (2)
  1. BUPROPION HYDROBROMIDE [Suspect]
     Indication: PRODUCT USED FOR UNKNOWN INDICATION
     Dosage: DF
  2. WELLBUTRIN SR [Suspect]
     Indication: PRODUCT USED FOR UNKNOWN INDICATION
     Dosage: DF

REACTIONS (6)
  - IMPAIRED WORK ABILITY [None]
  - MAJOR DEPRESSION [None]
  - ANXIETY [None]
  - DEATH OF RELATIVE [None]
  - PRODUCT SUBSTITUTION ISSUE [None]
  - SUICIDAL IDEATION [None]
